FAERS Safety Report 5428647-4 (Version None)
Quarter: 2007Q3

REPORT INFORMATION
  Report Type: 
  Country: None (occurrence: None)
  Receive Date: 20070827
  Receipt Date: 20070814
  Transmission Date: 20080115
  Serious: Yes (Hospitalization)
  Sender: FDA-Public Use
  Company Number: 2007BI015542

PATIENT
  Age: 52 Year
  Sex: Female

DRUGS (4)
  1. NATALIZUMAB [Suspect]
     Indication: MULTIPLE SCLEROSIS
     Dosage: 300 MG; QM; IV
     Route: 042
     Dates: start: 20070327
  2. TOPROL-XL [Concomitant]
  3. CLONAZEPAM [Concomitant]
  4. LISINOPRIL [Concomitant]

REACTIONS (3)
  - DYSPNOEA EXERTIONAL [None]
  - EMPHYSEMA [None]
  - FATIGUE [None]
